FAERS Safety Report 7587745-X (Version None)
Quarter: 2011Q3

REPORT INFORMATION
  Report Type: 
  Country: None (occurrence: None)
  Receive Date: 20110704
  Receipt Date: 20110629
  Transmission Date: 20111222
  Serious: Yes (Hospitalization)
  Sender: FDA-Public Use
  Company Number: US-BRISTOL-MYERS SQUIBB COMPANY-15864184

PATIENT
  Sex: Male

DRUGS (1)
  1. BARACLUDE [Suspect]
     Dosage: 4-5 YEARS

REACTIONS (3)
  - VIRAL LOAD INCREASED [None]
  - LIVER FUNCTION TEST ABNORMAL [None]
  - PNEUMONITIS [None]
